FAERS Safety Report 17017021 (Version 5)
Quarter: 2020Q3

REPORT INFORMATION
  Report Type: Report from Study
  Country: IT (occurrence: IT)
  Receive Date: 20191111
  Receipt Date: 20200813
  Transmission Date: 20201102
  Serious: Yes (Other)
  Sender: FDA-Public Use
  Company Number: IT-INCYTE CORPORATION-2019IN002207

PATIENT

DRUGS (7)
  1. JAKAVI [Suspect]
     Active Substance: RUXOLITINIB
     Dosage: 2.8 MG, BID
     Route: 048
     Dates: start: 20190822, end: 201910
  2. JAKAVI [Suspect]
     Active Substance: RUXOLITINIB
     Dosage: 10 MG, BID
     Route: 048
  3. JAKAVI [Suspect]
     Active Substance: RUXOLITINIB
     Indication: POLYCYTHAEMIA VERA
     Dosage: 20 OT
     Route: 048
     Dates: start: 20180823, end: 20181007
  4. JAKAVI [Suspect]
     Active Substance: RUXOLITINIB
     Dosage: 10 OT
     Route: 048
     Dates: start: 20181023, end: 20190526
  5. JAKAVI [Suspect]
     Active Substance: RUXOLITINIB
     Dosage: 10 MG, BID
     Route: 048
     Dates: start: 20190627, end: 20190805
  6. JAKAVI [Suspect]
     Active Substance: RUXOLITINIB
     Dosage: 4.2 MG, BID
     Route: 048
     Dates: start: 20190806, end: 20190821
  7. JAKAVI [Suspect]
     Active Substance: RUXOLITINIB
     Dosage: 10 OT
     Route: 048
     Dates: start: 201910

REACTIONS (11)
  - Haemoglobin decreased [Unknown]
  - Monocyte count decreased [Unknown]
  - Blood creatinine increased [Not Recovered/Not Resolved]
  - Anaemia [Not Recovered/Not Resolved]
  - Eosinophil count decreased [Unknown]
  - Thrombocytopenia [Recovered/Resolved]
  - Haematocrit decreased [Unknown]
  - Aquagenic pruritus [Recovered/Resolved]
  - Renal failure [Recovered/Resolved]
  - Red blood cell count decreased [Unknown]
  - White blood cell count decreased [Unknown]

NARRATIVE: CASE EVENT DATE: 20180906
